FAERS Safety Report 25736188 (Version 2)
Quarter: 2025Q3

REPORT INFORMATION
  Report Type: Spontaneous
  Country: US (occurrence: US)
  Receive Date: 20250828
  Receipt Date: 20250927
  Transmission Date: 20251021
  Serious: No
  Sender: SANOFI AVENTIS
  Company Number: US-SA-2025SA256258

PATIENT
  Age: 63 Year
  Sex: Male

DRUGS (2)
  1. DUPIXENT [Suspect]
     Active Substance: DUPILUMAB
     Indication: Asthma
     Route: 058
     Dates: start: 20250424, end: 20250424
  2. DUPIXENT [Suspect]
     Active Substance: DUPILUMAB
     Dosage: 300 MG, QOW
     Route: 058
     Dates: start: 202505, end: 20250719

REACTIONS (4)
  - Dyspnoea [Unknown]
  - Therapeutic response shortened [Unknown]
  - Anxiety [Unknown]
  - Fear of injection [Unknown]

NARRATIVE: CASE EVENT DATE: 20250101
